FAERS Safety Report 5735339-0 (Version None)
Quarter: 2008Q2

REPORT INFORMATION
  Report Type: 
  Country: None (occurrence: None)
  Receive Date: 20080508
  Receipt Date: 20080508
  Transmission Date: 20081010
  Serious: No
  Sender: FDA-Public Use
  Company Number: None

PATIENT
  Age: 18 Year
  Sex: Female
  Weight: 59.8748 kg

DRUGS (2)
  1. CREST W/ FLUORIDE [Suspect]
     Indication: DENTAL CARE
     Dosage: ALOT  ALL THE TIME DENTAL
     Route: 004
     Dates: start: 20070801, end: 20080506
  2. CREST W/ FLUORIDE [Suspect]
     Dosage: ALOT  ALL THE TIME  DENTAL
     Route: 004
     Dates: start: 20070801, end: 20080506

REACTIONS (4)
  - DYSGEUSIA [None]
  - ORAL DISORDER [None]
  - SENSITIVITY OF TEETH [None]
  - TOOTH DISCOLOURATION [None]
